FAERS Safety Report 7244570-7 (Version None)
Quarter: 2011Q1

REPORT INFORMATION
  Report Type: 
  Country: None (occurrence: None)
  Receive Date: 20110125
  Receipt Date: 20110118
  Transmission Date: 20110831
  Serious: Yes (Hospitalization)
  Sender: FDA-Public Use
  Company Number: JP-PFIZER INC-2010172165

PATIENT
  Age: 71 Year
  Sex: Female
  Weight: 52 kg

DRUGS (8)
  1. SOLU-MEDROL [Suspect]
     Dosage: 40 MG, 1X/DAY
     Route: 042
     Dates: start: 20090124, end: 20090130
  2. MEDROL [Suspect]
     Indication: COLITIS ULCERATIVE
     Dosage: UNK
     Route: 048
     Dates: start: 20090131, end: 20090613
  3. MESALAZINE [Concomitant]
     Dosage: UNK
  4. GASTER [Concomitant]
     Dosage: UNK
  5. SALICYLAZOSULFAPYRIDINE [Concomitant]
     Indication: COLITIS ULCERATIVE
     Dosage: 4500 MG, 1X/DAY
     Route: 048
  6. SOLU-MEDROL [Suspect]
     Dosage: 40 MG, 1X/DAY
     Route: 042
     Dates: start: 20090430, end: 20090502
  7. SOLU-MEDROL [Suspect]
     Indication: COLITIS ULCERATIVE
     Dosage: 40 MG, 1X/DAY
     Route: 042
     Dates: start: 20090114, end: 20090118
  8. PREDNISOLONE [Suspect]
     Indication: COLITIS ULCERATIVE
     Dosage: 15 MG, 1X/DAY
     Route: 048

REACTIONS (1)
  - HEPATITIS B [None]
